FAERS Safety Report 7955345-5 (Version None)
Quarter: 2011Q4

REPORT INFORMATION
  Report Type: 
  Country: None (occurrence: None)
  Receive Date: 20111202
  Receipt Date: 20111121
  Transmission Date: 20120403
  Serious: Yes (Hospitalization, Other)
  Sender: FDA-Public Use
  Company Number: US-ELI_LILLY_AND_COMPANY-US201105008691

PATIENT
  Sex: Female

DRUGS (23)
  1. FUROSEMIDE [Concomitant]
  2. FORTEO [Suspect]
     Indication: OSTEOPOROSIS
     Dosage: 20 UG, QD
  3. FORTEO [Suspect]
     Dosage: 20 UG, QD
     Route: 065
  4. SPIRONOLACTONE [Concomitant]
     Dosage: 25 MG, QD
  5. CALCIUM [Concomitant]
     Dosage: 1500 MG, QD
  6. CYANOCOBALAMIN [Concomitant]
  7. NITROGLYCERIN [Concomitant]
     Indication: CHEST PAIN
     Dosage: 0.4 ML, PRN
  8. EFFIENT [Concomitant]
  9. OXYGEN [Concomitant]
     Dosage: 2 L, QD
  10. LEXAPRO [Concomitant]
     Dosage: 10 MG, QD
  11. SIMVASTATIN [Concomitant]
  12. ADVAIR DISKUS 100/50 [Concomitant]
  13. CARVEDILOL [Concomitant]
     Dosage: 3.125 MG, BID
  14. ACETAMINOPHEN [Concomitant]
     Indication: MIGRAINE
     Dosage: 325 MG, QD
  15. LOSARTAN POTASSIUM [Concomitant]
  16. ATORVASTATIN [Concomitant]
     Dosage: 40 MG, QD
  17. PRASUGREL HYDROCHLORIDE [Concomitant]
     Dosage: 10 MG, QD
  18. PANTOPRAZOLE [Concomitant]
     Dosage: 40 MG, QD
  19. ADVAIR DISKUS 100/50 [Concomitant]
     Dosage: UNK, BID
  20. NASACORT [Concomitant]
  21. ASPIRIN [Concomitant]
     Dosage: 81 MG, QD
  22. LOSARTAN POTASSIUM [Concomitant]
     Dosage: 50 MG, QD
  23. VITAMIN D [Concomitant]

REACTIONS (4)
  - MYOCARDIAL INFARCTION [None]
  - MYALGIA [None]
  - CONTUSION [None]
  - ARTHRALGIA [None]
